FAERS Safety Report 12490812 (Version 5)
Quarter: 2021Q1

REPORT INFORMATION
  Report Type: Report from Study
  Country: DE (occurrence: DE)
  Receive Date: 20160622
  Receipt Date: 20210312
  Transmission Date: 20210419
  Serious: Yes (Hospitalization)
  Sender: FDA-Public Use
  Company Number: DE-BIOGEN-2016BI00207474

PATIENT
  Age: 68 Year
  Sex: Female

DRUGS (1)
  1. PLEGRIDY [Suspect]
     Active Substance: PEGINTERFERON BETA-1A
     Indication: MULTIPLE SCLEROSIS
     Route: 058
     Dates: start: 20150726

REACTIONS (3)
  - Inguinal hernia [Recovered/Resolved with Sequelae]
  - Multiple sclerosis [Not Recovered/Not Resolved]
  - Musculoskeletal disorder [Not Recovered/Not Resolved]

NARRATIVE: CASE EVENT DATE: 201602
